FAERS Safety Report 13257209 (Version 3)
Quarter: 2018Q3

REPORT INFORMATION
  Report Type: Spontaneous
  Country: JP (occurrence: JP)
  Receive Date: 20170221
  Receipt Date: 20180907
  Transmission Date: 20181010
  Serious: Yes (Other)
  Sender: FDA-Public Use
  Company Number: JP-BAYER-2017-030315

PATIENT
  Age: 35 Week
  Sex: Male
  Weight: 2.41 kg

DRUGS (3)
  1. IMMUNOGLOBULIN [Concomitant]
     Dosage: DAILY DOSE 20 G
     Route: 064
  2. BAYASPIRIN 100 MG [Suspect]
     Active Substance: ASPIRIN
     Dosage: UNK
     Route: 064
  3. HEPARIN [Concomitant]
     Active Substance: HEPARIN SODIUM
     Dosage: UNK
     Route: 064

REACTIONS (3)
  - Premature baby [None]
  - Low birth weight baby [None]
  - Foetal exposure timing unspecified [Recovered/Resolved]

NARRATIVE: CASE EVENT DATE: 200809
